FAERS Safety Report 19680560 (Version 1)
Quarter: 2021Q3

REPORT INFORMATION
  Report Type: Spontaneous
  Country: CN (occurrence: CN)
  Receive Date: 20210810
  Receipt Date: 20210810
  Transmission Date: 20211014
  Serious: Yes (Hospitalization)
  Sender: FDA-Public Use
  Company Number: CN-OTSUKA-2021_027411

PATIENT
  Age: 82 Year
  Sex: Male
  Weight: 60 kg

DRUGS (8)
  1. TOLVAPTAN TABLETS [Suspect]
     Active Substance: TOLVAPTAN
     Indication: CARDIAC FAILURE CHRONIC
     Dosage: 15 MG, QD
     Route: 048
     Dates: start: 20210720, end: 20210723
  2. LOW?MOLECULAR?WEIGHT HEPARIN CALCIUM [Suspect]
     Active Substance: HEPARIN CALCIUM
     Indication: ATRIAL FLUTTER
  3. DOXOFYLLINE [Suspect]
     Active Substance: DOXOFYLLINE
     Indication: CHRONIC OBSTRUCTIVE PULMONARY DISEASE
     Dosage: 0.2 G, QD (IV.GTT)
     Route: 042
     Dates: start: 20210720, end: 20210724
  4. LOW?MOLECULAR?WEIGHT HEPARIN CALCIUM [Suspect]
     Active Substance: HEPARIN CALCIUM
     Indication: ATRIAL FIBRILLATION
     Dosage: 0.4 ML, QD
     Route: 058
     Dates: start: 20210714, end: 20210722
  5. AMBROXOL HYDROCHLORIDE [Suspect]
     Active Substance: AMBROXOL HYDROCHLORIDE
     Indication: CHRONIC OBSTRUCTIVE PULMONARY DISEASE
     Dosage: 30 MG, BID
     Route: 042
     Dates: start: 20210714, end: 20210730
  6. SULPERAZON [Suspect]
     Active Substance: CEFOPERAZONE SODIUM\SULBACTAM SODIUM
     Indication: CHRONIC OBSTRUCTIVE PULMONARY DISEASE
     Dosage: 2 G, TID (IV.GTT)
     Route: 042
     Dates: start: 20210714, end: 20210722
  7. MEGLUMINE ADENOSINE CYCLOPHOSPHATE [Suspect]
     Active Substance: ADENOSINE CYCLIC PHOSPHATE MEGLUMINE
     Indication: CORONARY ARTERY DISEASE
     Dosage: 180 MG, QD (IV.GTT)
     Route: 042
     Dates: start: 20210714, end: 20210730
  8. ATORVASTATIN CALCIUM. [Suspect]
     Active Substance: ATORVASTATIN CALCIUM
     Indication: CORONARY ARTERY DISEASE
     Dosage: 20 MG, QD (NASAL FEED)
     Route: 045
     Dates: start: 20210714, end: 20210730

REACTIONS (1)
  - Upper gastrointestinal haemorrhage [Recovering/Resolving]

NARRATIVE: CASE EVENT DATE: 20210722
